FAERS Safety Report 9796864 (Version 1)
Quarter: 2014Q1

REPORT INFORMATION
  Report Type: Report from Study
  Country: GB (occurrence: GB)
  Receive Date: 20140103
  Receipt Date: 20140103
  Transmission Date: 20141002
  Serious: Yes (Life-Threatening, Hospitalization)
  Sender: FDA-Public Use
  Company Number: GB-ASTRAZENECA-2014SE00176

PATIENT
  Sex: Male

DRUGS (3)
  1. VANDETANIB [Suspect]
     Indication: METASTATIC MALIGNANT MELANOMA
     Route: 048
     Dates: start: 20131121, end: 20131211
  2. DEXAMETHASONE [Suspect]
  3. RADIOTHERAPY [Suspect]
     Indication: METASTATIC MALIGNANT MELANOMA
     Dates: start: 20131125, end: 20131206

REACTIONS (1)
  - Abscess intestinal [Unknown]
